FAERS Safety Report 23458316 (Version 1)
Quarter: 2024Q1

REPORT INFORMATION
  Report Type: Spontaneous
  Country: US (occurrence: US)
  Receive Date: 20240130
  Receipt Date: 20240130
  Transmission Date: 20240410
  Serious: Yes (Death, Hospitalization, Other)
  Sender: FDA-Public Use
  Company Number: US-GILEAD-2024-0660245

PATIENT
  Age: 50 Year
  Sex: Male

DRUGS (1)
  1. YESCARTA [Suspect]
     Active Substance: AXICABTAGENE CILOLEUCEL
     Indication: Diffuse large B-cell lymphoma
     Dosage: UNK
     Route: 065
     Dates: start: 20240116, end: 20240116

REACTIONS (7)
  - Cardio-respiratory arrest [Fatal]
  - Lactic acidosis [Unknown]
  - Cholecystitis [Unknown]
  - Vomiting [Unknown]
  - Tachycardia [Unknown]
  - Hypotension [Unknown]
  - Nausea [Unknown]

NARRATIVE: CASE EVENT DATE: 20240119
